FAERS Safety Report 5104295-0 (Version None)
Quarter: 2006Q3

REPORT INFORMATION
  Report Type: 
  Country: None (occurrence: None)
  Receive Date: 20060912
  Receipt Date: 20060912
  Transmission Date: 20061208
  Serious: Yes (Hospitalization)
  Sender: FDA-Public Use
  Company Number: None

PATIENT
  Sex: Male

DRUGS (12)
  1. NIFEDIPINE [Suspect]
     Indication: HYPERTENSION
     Dosage: 60 MG  BID   PO
     Route: 048
  2. BUMETANIDE [Concomitant]
  3. ASPIRIN [Concomitant]
  4. ATENOLOL [Concomitant]
  5. CALCIUM GLUCONATE [Concomitant]
  6. FLUNISOLIDE NASAL [Concomitant]
  7. IPRATROPIUM BROMIDE [Concomitant]
  8. POTASSIUM CHLORIDE [Concomitant]
  9. CLOPIDOGREL [Concomitant]
  10. TERAZOSIN HCL [Concomitant]
  11. SIMVASTATIN [Concomitant]
  12. SERTRALINE [Concomitant]

REACTIONS (2)
  - DIZZINESS [None]
  - ORTHOSTATIC HYPOTENSION [None]
